FAERS Safety Report 14412981 (Version 2)
Quarter: 2018Q1

REPORT INFORMATION
  Report Type: Report from Study
  Country: CA (occurrence: CA)
  Receive Date: 20180119
  Receipt Date: 20180202
  Transmission Date: 20180509
  Serious: Yes (Hospitalization, Other)
  Sender: FDA-Public Use
  Company Number: CA-BRISTOL-MYERS SQUIBB COMPANY-BMS-2018-000508

PATIENT
  Age: 60 Year
  Sex: Male

DRUGS (1)
  1. NIVOLUMAB [Suspect]
     Active Substance: NIVOLUMAB
     Indication: OESOPHAGEAL CARCINOMA
     Dosage: 3 MG/KG, 270MG Q2WK
     Route: 042
     Dates: start: 20171221, end: 20180124

REACTIONS (16)
  - Pallor [Unknown]
  - Pain [Not Recovered/Not Resolved]
  - Dry mouth [Unknown]
  - Anaemia [Unknown]
  - Arthralgia [Unknown]
  - Pyrexia [Not Recovered/Not Resolved]
  - Cough [Unknown]
  - Hypoaesthesia [Unknown]
  - Adverse event [Unknown]
  - Cachexia [Unknown]
  - Product use in unapproved indication [Unknown]
  - Hospitalisation [Unknown]
  - Metastases to spine [Unknown]
  - Fatigue [Unknown]
  - Musculoskeletal pain [Unknown]
  - Appetite disorder [Not Recovered/Not Resolved]

NARRATIVE: CASE EVENT DATE: 20180101
